FAERS Safety Report 8275742-0 (Version None)
Quarter: 2012Q2

REPORT INFORMATION
  Report Type: 
  Country: None (occurrence: None)
  Receive Date: 20120410
  Receipt Date: 20120410
  Transmission Date: 20120825
  Serious: Yes (Hospitalization)
  Sender: FDA-Public Use
  Company Number: None

PATIENT
  Age: 61 Year
  Sex: Male
  Weight: 80 kg

DRUGS (2)
  1. CLINDAMYCIN [Suspect]
     Indication: CELLULITIS
     Dosage: 300 MG QID PO
     Route: 048
     Dates: start: 20110901, end: 20110918
  2. CEFPODOXIME PROXETIL [Suspect]
     Indication: CELLULITIS
     Dosage: 200 MG BID PO
     Route: 048
     Dates: start: 20110901, end: 20110918

REACTIONS (1)
  - CLOSTRIDIUM DIFFICILE COLITIS [None]
